FAERS Safety Report 23976358 (Version 4)
Quarter: 2024Q3

REPORT INFORMATION
  Report Type: Report from Study
  Country: US (occurrence: US)
  Receive Date: 20240614
  Receipt Date: 20240805
  Transmission Date: 20241017
  Serious: No
  Sender: ALEXION PHARMACEUTICALS
  Company Number: US-AstraZeneca-CH-00642682A

PATIENT
  Sex: Female

DRUGS (1)
  1. STRENSIQ [Suspect]
     Active Substance: ASFOTASE ALFA
     Indication: Hypophosphatasia
     Dosage: UNK
     Route: 065

REACTIONS (8)
  - Pain [Unknown]
  - Myalgia [Unknown]
  - Fatigue [Unknown]
  - Feeling abnormal [Unknown]
  - Influenza [Unknown]
  - Weight decreased [Unknown]
  - Injection site discomfort [Unknown]
  - Incorrect dose administered [Unknown]
